FAERS Safety Report 20259354 (Version 2)
Quarter: 2022Q1

REPORT INFORMATION
  Report Type: Spontaneous
  Country: GR (occurrence: GR)
  Receive Date: 20211230
  Receipt Date: 20220207
  Transmission Date: 20220423
  Serious: Yes (Other)
  Sender: FDA-Public Use
  Company Number: GR-SCALL-2021-GR-000038

PATIENT
  Age: 70 Year
  Sex: Male

DRUGS (1)
  1. DUTASTERIDE\TAMSULOSIN HYDROCHLORIDE [Suspect]
     Active Substance: DUTASTERIDE\TAMSULOSIN HYDROCHLORIDE
     Indication: Product used for unknown indication
     Route: 065
     Dates: start: 202112, end: 20211222

REACTIONS (4)
  - Urinary retention [Unknown]
  - Constipation [Unknown]
  - Orthostatic hypotension [Unknown]
  - Anxiety [Unknown]

NARRATIVE: CASE EVENT DATE: 20211201
